FAERS Safety Report 4579141-4 (Version None)
Quarter: 2005Q1

REPORT INFORMATION
  Report Type: 
  Country: None (occurrence: None)
  Receive Date: 20050121
  Receipt Date: 20041028
  Transmission Date: 20050727
  Serious: Yes (Other)
  Sender: FDA-Public Use
  Company Number: STA-AE-04-MTX-521

PATIENT
  Sex: Male

DRUGS (8)
  1. METHOTREXATE [Suspect]
     Dosage: 7.5 MG 1X PER 1 WK
     Dates: start: 19950101, end: 20040924
  2. ENBREL [Suspect]
     Indication: RHEUMATOID ARTHRITIS
     Dosage: 25 MG 2X PER 1 WK, SC
     Route: 058
     Dates: start: 20021024, end: 20040924
  3. FOLIC ACID [Concomitant]
  4. CHONDROITIN SULFATE SODIUM (CHONDROITIN SULFATE SODIUM) [Concomitant]
  5. VITAMINS (VITAMINS) [Concomitant]
  6. CALCIUM (CALCIUM) [Concomitant]
  7. ACETYLSALICYLIC ACID SRT [Concomitant]
  8. QUININE SULFATE (QUININE SULFATE) [Concomitant]

REACTIONS (1)
  - HERPES ZOSTER [None]
